FAERS Safety Report 8199324-4 (Version None)
Quarter: 2012Q1

REPORT INFORMATION
  Report Type: 
  Country: None (occurrence: None)
  Receive Date: 20120309
  Receipt Date: 20120307
  Transmission Date: 20120608
  Serious: No
  Sender: FDA-Public Use
  Company Number: US-B.I. PHARMACEUTICALS,INC./RIDGEFIELD-2012-BP-02242BP

PATIENT
  Sex: Female

DRUGS (12)
  1. JANUVIA [Concomitant]
     Dosage: 100 MG
     Route: 048
  2. OSCAL ULTRA [Concomitant]
     Dosage: 1200 NR
     Route: 048
  3. POTASSIUM CHLORIDE [Concomitant]
     Route: 048
  4. NEXIUM [Concomitant]
     Dosage: 40 MG
     Route: 048
  5. MULTIVITAMIN MULTIPLE VITAMINS [Concomitant]
     Route: 048
  6. TRADJENTA [Suspect]
     Indication: TYPE 2 DIABETES MELLITUS
     Dosage: 5 MG
     Dates: start: 20111128, end: 20120201
  7. PRECISION ULTRA STRIPS [Concomitant]
  8. LINDEX OINTMENT [Concomitant]
  9. ALLEGRA [Concomitant]
     Dosage: 180 MG
     Route: 048
  10. SYNTHROID [Concomitant]
     Dosage: 0.088 MG
     Route: 048
  11. GLIPIZIDE [Concomitant]
     Dosage: 5 MG
     Route: 048
  12. LOTREL [Concomitant]
     Route: 048

REACTIONS (1)
  - PSORIASIS [None]
